FAERS Safety Report 8164444-7 (Version None)
Quarter: 2012Q1

REPORT INFORMATION
  Report Type: 
  Country: None (occurrence: None)
  Receive Date: 20120224
  Receipt Date: 20120222
  Transmission Date: 20120608
  Serious: Yes (Other)
  Sender: FDA-Public Use
  Company Number: MX-ABBOTT-12P-107-0908592-00

PATIENT
  Sex: Male

DRUGS (2)
  1. RITONAVIR [Suspect]
     Indication: HIV INFECTION
     Route: 048
  2. ATAZANAVIR [Concomitant]
     Indication: HIV INFECTION
     Route: 048
     Dates: start: 20110518, end: 20111103

REACTIONS (1)
  - ELECTROCARDIOGRAM QT PROLONGED [None]
